FAERS Safety Report 6416349-7 (Version None)
Quarter: 2009Q4

REPORT INFORMATION
  Report Type: 
  Country: None (occurrence: None)
  Receive Date: 20091027
  Receipt Date: 20091026
  Transmission Date: 20100525
  Serious: Yes (Hospitalization, Other)
  Sender: FDA-Public Use
  Company Number: US-PFIZER INC-2009267932

PATIENT
  Sex: Male

DRUGS (8)
  1. VFEND [Suspect]
     Indication: INFECTION
     Dosage: FREQUENCY: 2/XDAY,
     Route: 048
     Dates: start: 20090801
  2. AVELOX [Concomitant]
     Dosage: UNK
  3. PANTOPRAZOLE [Concomitant]
     Dosage: UNK
  4. ETHAMBUTOL HYDROCHLORIDE [Concomitant]
     Dosage: UNK
  5. MIRTAZAPINE [Concomitant]
     Dosage: UNK
  6. AZITHROMYCIN [Concomitant]
     Dosage: UNK
  7. REGLAN [Concomitant]
     Dosage: UNK
  8. AVAPRO [Concomitant]
     Dosage: UNK

REACTIONS (3)
  - DRUG DOSE OMISSION [None]
  - PULMONARY THROMBOSIS [None]
  - WEIGHT DECREASED [None]
